FAERS Safety Report 24181486 (Version 1)
Quarter: 2024Q3

REPORT INFORMATION
  Report Type: Other
  Country: US (occurrence: US)
  Receive Date: 20240807
  Receipt Date: 20240807
  Transmission Date: 20241016
  Serious: Yes (Hospitalization, Other)
  Sender: BIONPHARMA
  Company Number: US-Bion-013599

PATIENT
  Age: 73 Year
  Sex: Female

DRUGS (1)
  1. AZITHROMYCIN [Suspect]
     Active Substance: AZITHROMYCIN
     Indication: Bronchiolitis

REACTIONS (1)
  - Pulmonary alveolar haemorrhage [Recovering/Resolving]
